FAERS Safety Report 8736606 (Version 2)
Quarter: 2013Q1

REPORT INFORMATION
  Report Type: Spontaneous
  Country: FR (occurrence: FR)
  Receive Date: 20120822
  Receipt Date: 20130204
  Transmission Date: 20140127
  Serious: Yes (Other)
  Sender: FDA-Public Use
  Company Number: FR-GLAXOSMITHKLINE-B0823012A

PATIENT
  Age: 32 Year
  Sex: Female

DRUGS (1)
  1. ACICLOVIR [Suspect]
     Indication: HERPES VIRUS INFECTION
     Dosage: 200MG FIVE TIMES PER DAY
     Route: 048
     Dates: start: 20120621

REACTIONS (2)
  - Ear discomfort [Recovered/Resolved]
  - Deafness [Recovered/Resolved]
